FAERS Safety Report 9313337 (Version 1)
Quarter: 2013Q2

REPORT INFORMATION
  Report Type: Spontaneous
  Country: US (occurrence: US)
  Receive Date: 20130528
  Receipt Date: 20130528
  Transmission Date: 20140414
  Serious: No
  Sender: FDA-Public Use
  Company Number: US-ABBOTT-13P-163-1074828-00

PATIENT
  Age: 40 Year
  Sex: Male
  Weight: 72.64 kg

DRUGS (7)
  1. ANDROGEL [Suspect]
     Indication: BLOOD TESTOSTERONE DECREASED
     Dosage: 2 PUMPS DAILY
     Route: 061
     Dates: start: 201211, end: 20130409
  2. ANDROGEL [Suspect]
     Dosage: 3 PUMPS DAILY
     Route: 061
     Dates: start: 20130409
  3. AMBIEN [Suspect]
     Indication: INSOMNIA
  4. COPAXONE [Concomitant]
     Indication: MULTIPLE SCLEROSIS
  5. WELLBUTRIN [Concomitant]
     Indication: ANXIETY
  6. PERCOCET [Concomitant]
     Indication: PAIN
  7. PERCOCET [Concomitant]
     Indication: MULTIPLE SCLEROSIS

REACTIONS (2)
  - Irritability [Not Recovered/Not Resolved]
  - Blood testosterone decreased [Not Recovered/Not Resolved]
